FAERS Safety Report 21376835 (Version 1)
Quarter: 2022Q3

REPORT INFORMATION
  Report Type: Spontaneous
  Country: US (occurrence: US)
  Receive Date: 20220926
  Receipt Date: 20220926
  Transmission Date: 20221026
  Serious: No
  Sender: FDA-Public Use
  Company Number: US-BAYER-2022A131978

PATIENT
  Age: 37 Year
  Sex: Female

DRUGS (1)
  1. KYLEENA [Suspect]
     Active Substance: LEVONORGESTREL
     Indication: Contraception
     Dosage: 17.5?G/DAY
     Route: 015
     Dates: start: 20200417, end: 20200522

REACTIONS (4)
  - Device dislocation [None]
  - Heavy menstrual bleeding [None]
  - Abnormal uterine bleeding [None]
  - Vaginal haemorrhage [None]

NARRATIVE: CASE EVENT DATE: 20200701
